FAERS Safety Report 10769137 (Version 2)
Quarter: 2015Q2

REPORT INFORMATION
  Report Type: Spontaneous
  Country: US (occurrence: US)
  Receive Date: 20150206
  Receipt Date: 20150410
  Transmission Date: 20150821
  Serious: No
  Sender: FDA-Public Use
  Company Number: US-BRISTOL-MYERS SQUIBB COMPANY-BMS-2015-006888

PATIENT
  Sex: Female

DRUGS (2)
  1. ABILIFY [Suspect]
     Active Substance: ARIPIPRAZOLE
     Indication: ATTENTION DEFICIT/HYPERACTIVITY DISORDER
     Dosage: 5 MG, QD
     Route: 048
     Dates: start: 20140818, end: 201410
  2. ABILIFY [Suspect]
     Active Substance: ARIPIPRAZOLE
     Indication: AGGRESSION

REACTIONS (1)
  - Aggression [Unknown]
